FAERS Safety Report 23937965 (Version 1)
Quarter: 2024Q2

REPORT INFORMATION
  Report Type: Spontaneous
  Country: CN (occurrence: CN)
  Receive Date: 20240604
  Receipt Date: 20240604
  Transmission Date: 20240716
  Serious: Yes (Hospitalization, Other)
  Sender: FDA-Public Use
  Company Number: CN-BAYER-2024A081152

PATIENT
  Age: 22 Year
  Sex: Female
  Weight: 100 kg

DRUGS (2)
  1. YAZ [Suspect]
     Active Substance: DROSPIRENONE\ETHINYL ESTRADIOL
     Indication: Polycystic ovarian syndrome
     Dosage: 1 DF, QD
     Dates: start: 20230831, end: 20240524
  2. YAZ [Suspect]
     Active Substance: DROSPIRENONE\ETHINYL ESTRADIOL
     Indication: Menstrual disorder

REACTIONS (5)
  - Pulmonary embolism [Recovering/Resolving]
  - Chest discomfort [Recovering/Resolving]
  - Pulmonary septal thickening [Recovering/Resolving]
  - Pulmonary mass [Recovering/Resolving]
  - Off label use [None]

NARRATIVE: CASE EVENT DATE: 20230831
